FAERS Safety Report 18523491 (Version 1)
Quarter: 2020Q4

REPORT INFORMATION
  Report Type: Spontaneous
  Country: GB (occurrence: GB)
  Receive Date: 20201119
  Receipt Date: 20201119
  Transmission Date: 20210114
  Serious: Yes (Other)
  Sender: FDA-Public Use
  Company Number: GB-FRESENIUS KABI-FK202012143

PATIENT
  Age: 59 Year
  Sex: Female

DRUGS (9)
  1. CARBOPLATIN (MANUFACTURER UNKNOWN) [Suspect]
     Active Substance: CARBOPLATIN
     Dosage: AREA UNDER CURVE-5, EACH INFUSION OVER 30 MINUTES AND THE HIGHEST CONCENTRATION WAS ADMINISTERED OVE
     Route: 042
  2. PACLITAXEL (MANUFACTURER UNKNOWN) [Suspect]
     Active Substance: PACLITAXEL
     Dosage: ON DAY 2, SHE RECEIVED SECOND CYCLE OF CHEMOTHERAPY 175 MG/M2 (378MG) AS A 6-HOUR INFUSION
     Route: 042
  3. CARBOPLATIN (MANUFACTURER UNKNOWN) [Suspect]
     Active Substance: CARBOPLATIN
     Indication: ENDOMETRIAL CANCER STAGE III
     Route: 065
     Dates: start: 2018
  4. PACLITAXEL (MANUFACTURER UNKNOWN) [Suspect]
     Active Substance: PACLITAXEL
     Indication: ENDOMETRIAL CANCER STAGE III
     Route: 065
     Dates: start: 2018
  5. CARBOPLATIN (MANUFACTURER UNKNOWN) [Suspect]
     Active Substance: CARBOPLATIN
     Dosage: DURING THE THIRD CYCLE, AS A 1-HOUR INFUSION
     Route: 065
  6. PACLITAXEL (MANUFACTURER UNKNOWN) [Suspect]
     Active Substance: PACLITAXEL
     Dosage: DURING THE THIRD CYCLE, PACLITAXEL INFUSION AT THE NORMAL RATE ON THE FOLLOWING DAY AT SAME DOSES
     Route: 065
  7. CARBOPLATIN (MANUFACTURER UNKNOWN) [Suspect]
     Active Substance: CARBOPLATIN
     Dosage: FOR HER FINAL CYCLE, SHE RECEIVED SAME DOSES
     Route: 065
  8. PACLITAXEL (MANUFACTURER UNKNOWN) [Suspect]
     Active Substance: PACLITAXEL
     Dosage: FOR HER FINAL CYCLE, SHE RECEIVED SAME DOSES
     Route: 065
  9. CARBOPLATIN (MANUFACTURER UNKNOWN) [Suspect]
     Active Substance: CARBOPLATIN
     Dosage: ON DAY 2, SHE RECEIVED SECOND CYCLE OF CHEMOTHERAPY AT SAME DOSE
     Route: 065

REACTIONS (3)
  - Dry skin [Recovered/Resolved]
  - Hypersensitivity [Recovered/Resolved]
  - Fatigue [Recovered/Resolved]
